FAERS Safety Report 7379196-8 (Version None)
Quarter: 2011Q1

REPORT INFORMATION
  Report Type: 
  Country: None (occurrence: None)
  Receive Date: 20110328
  Receipt Date: 20110303
  Transmission Date: 20110831
  Serious: Yes (Hospitalization)
  Sender: FDA-Public Use
  Company Number: DE-AMGEN-DEUCT2011007256

PATIENT
  Age: 55 Year
  Sex: Female
  Weight: 85 kg

DRUGS (19)
  1. METHOTREXATE SODIUM [Suspect]
     Dosage: 10 MG, UNK
     Dates: start: 20041101, end: 20090422
  2. METHOTREXATE SODIUM [Suspect]
     Dosage: UNK
     Dates: start: 20100701
  3. ARCOXIA [Concomitant]
     Dosage: 90 MG, 1X/DAY
     Dates: start: 20090401
  4. LYRICA [Concomitant]
     Dosage: 25 MG, 3X/DAY
     Dates: start: 20071001
  5. FOLINIC ACID [Concomitant]
     Dosage: 5 MG,  48H AFTER MT`X
  6. METOPROLOL SUCCINATE [Concomitant]
     Dosage: 1X95MG-1X1/2 OF 95MG DAILY
  7. ETANERCEPT [Suspect]
     Dosage: 25 UNK, UNK
     Route: 058
     Dates: start: 20070301, end: 20100422
  8. ETANERCEPT [Suspect]
     Dosage: UNK
     Dates: start: 20090510
  9. ARCOXIA [Concomitant]
     Dosage: 90 MG, AS NEEDED
  10. METOCLOPRAMIDE [Concomitant]
     Dosage: 20 GTT, 3X/DAY 24H PRIOR AND AFTER MTX
  11. CALCIUM WITH VITAMIN D             /01233101/ [Concomitant]
     Dosage: 1 DF, 2X/DAY
  12. OMEPRAZOLE [Concomitant]
     Dosage: 20 MG, 1X/DAY
  13. ETANERCEPT [Suspect]
     Dosage: 2X25 MG WEEKLY
     Dates: start: 20100701
  14. METHOTREXATE SODIUM [Suspect]
     Dosage: UNK
     Dates: start: 19940101
  15. PREDNISOLONE [Concomitant]
     Dosage: 20 MG, DAILY, REDUCTION TITRATION
     Dates: start: 20000101
  16. ETANERCEPT [Suspect]
     Indication: RHEUMATOID ARTHRITIS
     Dosage: 25 MG, UNK
     Route: 058
     Dates: start: 20050401, end: 20060501
  17. METHOTREXATE SODIUM [Suspect]
     Dosage: UNK
     Dates: start: 20090429
  18. METHOTREXATE SODIUM [Suspect]
     Dosage: 15 MG, WEEKLY
     Route: 058
     Dates: start: 20090422
  19. PANTOPRAZOLE [Concomitant]
     Dosage: UNK
     Dates: start: 20091101

REACTIONS (3)
  - ESCHERICHIA URINARY TRACT INFECTION [None]
  - RHEUMATOID ARTHRITIS [None]
  - CELLULITIS [None]
